FAERS Safety Report 15249833 (Version 1)
Quarter: 2018Q3

REPORT INFORMATION
  Report Type: Spontaneous
  Country: MX (occurrence: MX)
  Receive Date: 20180807
  Receipt Date: 20180807
  Transmission Date: 20181010
  Serious: Yes (Other)
  Sender: FDA-Public Use
  Company Number: MX-MYLANLABS-2018M1058920

PATIENT
  Age: 69 Year
  Sex: Female

DRUGS (3)
  1. PRAMIPEXOLE. [Suspect]
     Active Substance: PRAMIPEXOLE
     Dosage: INCREASING DOSE EVERY MONTH UP TO 3 MG.
     Route: 065
  2. PRAMIPEXOLE. [Suspect]
     Active Substance: PRAMIPEXOLE
     Dosage: INMEDIATE?RELEASE; SIX TABLETS OF 0.5 MG AT THE SAME TIME, EVERYDAY, FOR TEN DAYS
     Route: 065
  3. PRAMIPEXOLE. [Suspect]
     Active Substance: PRAMIPEXOLE
     Indication: PARKINSON^S DISEASE
     Dosage: EXTENDED?RELEASE
     Route: 065

REACTIONS (2)
  - Intentional product misuse [Unknown]
  - Pituitary haemorrhage [Unknown]
